FAERS Safety Report 9565341 (Version 1)
Quarter: 2013Q3

REPORT INFORMATION
  Report Type: Spontaneous
  Country: US (occurrence: US)
  Receive Date: 20130930
  Receipt Date: 20130930
  Transmission Date: 20140515
  Serious: Yes (Other)
  Sender: FDA-Public Use
  Company Number: US-BAYER-2013-115464

PATIENT
  Age: 29 Year
  Sex: Female

DRUGS (1)
  1. MIRENA [Suspect]
     Indication: CONTRACEPTION
     Dosage: 20 MCG/24HR, CONT
     Route: 015
     Dates: start: 20090326, end: 20130725

REACTIONS (4)
  - Device breakage [None]
  - Amenorrhoea [Not Recovered/Not Resolved]
  - Amenorrhoea [None]
  - Device dislocation [Not Recovered/Not Resolved]
